FAERS Safety Report 8112500-1 (Version None)
Quarter: 2012Q1

REPORT INFORMATION
  Report Type: 
  Country: None (occurrence: None)
  Receive Date: 20120131
  Receipt Date: 20120120
  Transmission Date: 20120608
  Serious: Yes (Other)
  Sender: FDA-Public Use
  Company Number: 2009001531

PATIENT
  Age: 69 Year
  Sex: Female

DRUGS (2)
  1. TARCEVA [Suspect]
     Indication: LUNG CARCINOMA CELL TYPE UNSPECIFIED STAGE 0
     Dosage: 3 X 25 MG, UID/QD, ORAL       100 MG, UID/QD, ORAL
     Route: 048
     Dates: start: 20090511
  2. TARCEVA [Suspect]
     Indication: LUNG CARCINOMA CELL TYPE UNSPECIFIED STAGE 0
     Dosage: 3 X 25 MG, UID/QD, ORAL       100 MG, UID/QD, ORAL
     Route: 048
     Dates: start: 20090316

REACTIONS (5)
  - EYE DISORDER [None]
  - PARONYCHIA [None]
  - ONYCHOMADESIS [None]
  - ONYCHOCLASIS [None]
  - INCORRECT DOSE ADMINISTERED [None]
